FAERS Safety Report 6006004-X (Version None)
Quarter: 2008Q4

REPORT INFORMATION
  Report Type: 
  Country: None (occurrence: None)
  Receive Date: 20081216
  Receipt Date: 20081216
  Transmission Date: 20090506
  Serious: Yes (Death)
  Sender: FDA-Public Use
  Company Number: None

PATIENT
  Age: 75 Year
  Sex: Female
  Weight: 52 kg

DRUGS (2)
  1. PROCHLORPERAZINE [Suspect]
     Indication: VOMITING
     Dosage: 10MG WITH MEALS IV BOLUS
     Route: 040
     Dates: start: 20081213, end: 20081213
  2. PROCHLORPERAZINE [Suspect]

REACTIONS (1)
  - CARDIO-RESPIRATORY ARREST [None]
